FAERS Safety Report 8054891-6 (Version None)
Quarter: 2012Q1

REPORT INFORMATION
  Report Type: 
  Country: None (occurrence: None)
  Receive Date: 20120119
  Receipt Date: 20111216
  Transmission Date: 20120608
  Serious: No
  Sender: FDA-Public Use
  Company Number: US-PFIZER INC-2012012901

PATIENT
  Sex: Female

DRUGS (3)
  1. PRISTIQ [Suspect]
  2. ARICEPT [Suspect]
     Dosage: 5 MG, UNK
     Dates: start: 20080601, end: 20090101
  3. ARICEPT [Suspect]
     Dosage: 2.5 MG, UNK
     Dates: start: 20080601, end: 20090101

REACTIONS (1)
  - DIARRHOEA [None]
